FAERS Safety Report 7582313-8 (Version None)
Quarter: 2011Q2

REPORT INFORMATION
  Report Type: 
  Country: None (occurrence: None)
  Receive Date: 20110527
  Receipt Date: 20101214
  Transmission Date: 20111010
  Serious: Yes (Hospitalization, Other)
  Sender: FDA-Public Use
  Company Number: US200810005404

PATIENT
  Age: 49 Year
  Sex: Male
  Weight: 147.4 kg

DRUGS (2)
  1. EXENATIDE PEN, DISPOSABLE DEVICE (EXENATIDE PEN, DISPOSABLE [Concomitant]
  2. BYETTA [Suspect]
     Indication: TYPE 2 DIABETES MELLITUS
     Dosage: 10 UG, 2/D
     Dates: start: 20080403, end: 20080802

REACTIONS (6)
  - RENAL FAILURE CHRONIC [None]
  - MALAISE [None]
  - VOMITING [None]
  - RENAL FAILURE ACUTE [None]
  - DEHYDRATION [None]
  - PANCREATITIS [None]
